FAERS Safety Report 6182839-8 (Version None)
Quarter: 2009Q2

REPORT INFORMATION
  Report Type: 
  Country: None (occurrence: None)
  Receive Date: 20090507
  Receipt Date: 20090429
  Transmission Date: 20091009
  Serious: Yes (Other)
  Sender: FDA-Public Use
  Company Number: GR-BAYER-200919721GPV

PATIENT
  Age: 70 Year
  Sex: Female

DRUGS (5)
  1. CIPROFLOXACIN [Suspect]
     Indication: CHOLECYSTITIS
     Dosage: TOTAL DAILY DOSE: 800 MG/D
     Route: 042
  2. AMIODARONE [Concomitant]
     Indication: ATRIAL FIBRILLATION
     Dosage: ^IN 30 MINUTES LOADING DOSE^
     Route: 042
  3. AMIODARONE [Concomitant]
     Dosage: TOTAL DAILY DOSE: 650 MG
     Route: 041
  4. DIGOXIN [Concomitant]
     Indication: ATRIAL FIBRILLATION
     Route: 065
  5. SOTALOL HYDROCHLORIDE [Concomitant]
     Indication: ATRIAL FIBRILLATION
     Route: 048

REACTIONS (4)
  - ELECTROCARDIOGRAM QT PROLONGED [None]
  - LONG QT SYNDROME [None]
  - SYNCOPE [None]
  - TORSADE DE POINTES [None]
